FAERS Safety Report 22028223 (Version 1)
Quarter: 2023Q1

REPORT INFORMATION
  Report Type: Spontaneous
  Country: US (occurrence: None)
  Receive Date: 20230223
  Receipt Date: 20230223
  Transmission Date: 20230417
  Serious: No
  Sender: FDA-Public Use
  Company Number: US-ROCHE-3115806

PATIENT
  Sex: Male
  Weight: 54.7 kg

DRUGS (4)
  1. NUTROPIN [Suspect]
     Active Substance: SOMATROPIN
     Indication: Short stature
     Dosage: 2.6 MG SUBCUTANEOUS 6 NIGHTS PER WEEK
     Route: 058
     Dates: start: 20220304
  2. NUTROPIN [Suspect]
     Active Substance: SOMATROPIN
  3. ALBUTEROL SULFATE [Concomitant]
     Active Substance: ALBUTEROL SULFATE
  4. ANASTROZOLE [Concomitant]
     Active Substance: ANASTROZOLE

REACTIONS (1)
  - Blood albumin increased [Unknown]
